FAERS Safety Report 14899406 (Version 1)
Quarter: 2018Q2

REPORT INFORMATION
  Report Type: Spontaneous
  Country: KR (occurrence: KR)
  Receive Date: 20180516
  Receipt Date: 20180516
  Transmission Date: 20180711
  Serious: Yes (Hospitalization, Other)
  Sender: FDA-Public Use
  Company Number: KR-ALKEM LABORATORIES LIMITED-KR-ALKEM-2018-01118

PATIENT
  Age: 42 Year
  Sex: Female

DRUGS (5)
  1. OLANZAPINE. [Suspect]
     Active Substance: OLANZAPINE
     Indication: PRODUCT USED FOR UNKNOWN INDICATION
     Dosage: 1.25 MG, UNK
     Route: 065
  2. QUETIAPINE FUMARATE. [Suspect]
     Active Substance: QUETIAPINE FUMARATE
     Indication: HOSTILITY
     Dosage: 800 MG, QD
     Route: 065
  3. OLANZAPINE. [Suspect]
     Active Substance: OLANZAPINE
     Dosage: 3.75 MG, QD
     Route: 065
  4. OLANZAPINE. [Suspect]
     Active Substance: OLANZAPINE
     Dosage: 2.5 MG, UNK
     Route: 065
  5. HALOPERIDOL. [Suspect]
     Active Substance: HALOPERIDOL
     Indication: ABNORMAL BEHAVIOUR
     Dosage: 5 MG, UNK
     Route: 065

REACTIONS (6)
  - Dyskinesia [Recovered/Resolved]
  - Mental disorder [Recovered/Resolved]
  - Dystonia [Recovered/Resolved]
  - Neuroleptic malignant syndrome [Recovered/Resolved]
  - Altered state of consciousness [Recovered/Resolved]
  - Weight increased [Unknown]
